FAERS Safety Report 7315521 (Version 4)
Quarter: 2012Q4

REPORT INFORMATION
  Report Type: 
  Country: US (occurrence: US)
  Receive Date: 20100311
  Receipt Date: 20120907
  Transmission Date: 20130627
  Serious: Yes (Hospitalization)
  Sender: FDA-Public Use
  Company Number: US-BAYER-201015821NA

PATIENT
  Age: 36 Year
  Sex: Female
  Weight: 68.03 kg

DRUGS (6)
  1. OCELLA [Suspect]
     Indication: PREMENSTRUAL SYNDROME
     Dosage: UNK
     Dates: start: 200611, end: 200808
  2. YASMIN [Suspect]
     Indication: PREMENSTRUAL SYNDROME
     Dosage: UNK
     Dates: start: 200611, end: 200808
  3. YASMIN [Suspect]
     Indication: CONTRACEPTION
  4. AMOXICILLIN [Concomitant]
     Dosage: UNK
     Dates: start: 2008
  5. CEPHALEXIN [Concomitant]
     Dosage: UNK
     Dates: start: 2008
  6. KEFLEX [Concomitant]

REACTIONS (2)
  - Thrombophlebitis superficial [None]
  - Deep vein thrombosis [None]
